FAERS Safety Report 9354279 (Version 1)
Quarter: 2013Q2

REPORT INFORMATION
  Report Type: Spontaneous
  Country: US (occurrence: US)
  Receive Date: 20130618
  Receipt Date: 20130618
  Transmission Date: 20140414
  Serious: Yes (Other)
  Sender: FDA-Public Use
  Company Number: US-TEVA-411588USA

PATIENT
  Sex: Female

DRUGS (3)
  1. TREANDA [Suspect]
     Indication: CHRONIC LYMPHOCYTIC LEUKAEMIA
     Route: 042
  2. TREANDA [Suspect]
     Route: 042
  3. TREANDA [Suspect]
     Route: 042

REACTIONS (3)
  - Simplex virus test positive [Unknown]
  - Leukopenia [Recovered/Resolved]
  - Fatigue [Unknown]
